FAERS Safety Report 18704962 (Version 3)
Quarter: 2021Q1

REPORT INFORMATION
  Report Type: Spontaneous
  Country: PL (occurrence: PL)
  Receive Date: 20210106
  Receipt Date: 20210120
  Transmission Date: 20210419
  Serious: Yes (Hospitalization, Other)
  Sender: FDA-Public Use
  Company Number: PL-AUROBINDO-AUR-APL-2020-064296

PATIENT
  Age: 42 Year
  Sex: Male

DRUGS (16)
  1. TRAMADOL. [Suspect]
     Active Substance: TRAMADOL
     Indication: ARTHRALGIA
     Dosage: UNK
     Route: 065
  2. IBUPROFEN. [Suspect]
     Active Substance: IBUPROFEN
     Indication: BONE PAIN
  3. OXYCODONE [Suspect]
     Active Substance: OXYCODONE
     Indication: PRODUCT USED FOR UNKNOWN INDICATION
     Dosage: 240 MILLIGRAM, ONCE A DAY (80 MILLIGRAM, 3 TIMES A DAY)
     Route: 065
  4. PARACETAMOL [Suspect]
     Active Substance: ACETAMINOPHEN
     Indication: BONE PAIN
  5. IBUPROFEN. [Suspect]
     Active Substance: IBUPROFEN
     Indication: ARTHRALGIA
     Dosage: UNK
     Route: 065
  6. PARACETAMOL [Suspect]
     Active Substance: ACETAMINOPHEN
     Indication: ARTHRALGIA
     Dosage: UNK
     Route: 065
  7. METAMIZOLE [Suspect]
     Active Substance: METAMIZOLE
     Indication: BONE PAIN
  8. MORPHINE [Suspect]
     Active Substance: MORPHINE
     Indication: BONE PAIN
  9. TRAMADOL. [Suspect]
     Active Substance: TRAMADOL
     Indication: BONE PAIN
  10. KETOPROFEN. [Suspect]
     Active Substance: KETOPROFEN
     Indication: BONE PAIN
  11. FENTANYL. [Suspect]
     Active Substance: FENTANYL
     Indication: PAIN
     Dosage: 200 MICROGRAM, FOUR TIMES/DAY
     Route: 002
  12. KETOPROFEN. [Suspect]
     Active Substance: KETOPROFEN
     Indication: ARTHRALGIA
     Dosage: UNK
     Route: 065
  13. METAMIZOLE [Suspect]
     Active Substance: METAMIZOLE
     Indication: ARTHRALGIA
     Dosage: UNK
     Route: 065
  14. MORPHINE [Suspect]
     Active Substance: MORPHINE
     Indication: ARTHRALGIA
     Dosage: UNK
     Route: 065
  15. FENTANYL. [Suspect]
     Active Substance: FENTANYL
     Indication: PRODUCT USED FOR UNKNOWN INDICATION
     Dosage: UNK
     Route: 065
  16. GABAPENTIN. [Suspect]
     Active Substance: GABAPENTIN
     Indication: PRODUCT USED FOR UNKNOWN INDICATION
     Dosage: 900 MILLIGRAM, ONCE A DAY (300 MILLIGRAM, 3 TIMES A DAY)
     Route: 065

REACTIONS (6)
  - Drug dependence [Recovered/Resolved]
  - Therapeutic product effect incomplete [Unknown]
  - Gingival pain [Unknown]
  - Constipation [Unknown]
  - Anaphylactic shock [Recovered/Resolved]
  - Toothache [Unknown]
